FAERS Safety Report 7055679-5 (Version None)
Quarter: 2010Q4

REPORT INFORMATION
  Report Type: 
  Country: None (occurrence: None)
  Receive Date: 20101021
  Receipt Date: 20101011
  Transmission Date: 20110411
  Serious: Yes (Hospitalization)
  Sender: FDA-Public Use
  Company Number: US-JNJFOC-20100900689

PATIENT
  Sex: Female
  Weight: 80 kg

DRUGS (11)
  1. BLINDED; GOLIMUMA [Suspect]
     Route: 058
  2. BLINDED; GOLIMUMA [Suspect]
     Indication: RHEUMATOID ARTHRITIS
     Route: 058
  3. PLACEBO [Suspect]
     Indication: RHEUMATOID ARTHRITIS
     Route: 058
  4. PROPOXYPHENE NAPSYLATE [Concomitant]
     Indication: PAIN
  5. CELECOXIB [Concomitant]
  6. CYCLOBENZAPRINE [Concomitant]
  7. SODIUM DOCUSATE [Concomitant]
  8. HYDROCODONE [Concomitant]
  9. CIPROFLOXACIN [Concomitant]
  10. PREDNISONE [Concomitant]
  11. ANTIVERT [Concomitant]
     Indication: VERTIGO

REACTIONS (2)
  - BACK PAIN [None]
  - POSTOPERATIVE WOUND INFECTION [None]
